FAERS Safety Report 18304284 (Version 1)
Quarter: 2020Q3

REPORT INFORMATION
  Report Type: Report from Study
  Country: US (occurrence: US)
  Receive Date: 20200923
  Receipt Date: 20200923
  Transmission Date: 20201103
  Serious: Yes (Life-Threatening, Other)
  Sender: FDA-Public Use
  Company Number: US-MYLANLABS-2020M1047574

PATIENT
  Age: 24 Year
  Sex: Female
  Weight: 54 kg

DRUGS (2)
  1. GLATIRAMER ACETATE INJECTION [Suspect]
     Active Substance: GLATIRAMER ACETATE
     Indication: RELAPSING-REMITTING MULTIPLE SCLEROSIS
     Dosage: 40MG SQ 3 TIMES/WEEK
     Route: 058
     Dates: start: 202003
  2. GLATIRAMER ACETATE INJECTION [Suspect]
     Active Substance: GLATIRAMER ACETATE
     Indication: CLINICALLY ISOLATED SYNDROME
     Dosage: 40 MILLIGRAM (1?2X/WEEK)
     Route: 042
     Dates: start: 20200708, end: 2020

REACTIONS (11)
  - Overdose [Unknown]
  - Injection site urticaria [Recovering/Resolving]
  - Product dose omission issue [Unknown]
  - Angioedema [Unknown]
  - Incorrect route of product administration [Unknown]
  - Injection site pain [Recovering/Resolving]
  - Inappropriate schedule of product administration [Unknown]
  - Anaphylactic reaction [Unknown]
  - Smear cervix abnormal [Recovering/Resolving]
  - Injection site swelling [Recovering/Resolving]
  - Oral herpes [Recovering/Resolving]

NARRATIVE: CASE EVENT DATE: 2020
